FAERS Safety Report 7127277-6 (Version None)
Quarter: 2010Q4

REPORT INFORMATION
  Report Type: 
  Country: None (occurrence: None)
  Receive Date: 20101129
  Receipt Date: 20100407
  Transmission Date: 20110411
  Serious: No
  Sender: FDA-Public Use
  Company Number: US-PFIZER INC-2010044810

PATIENT
  Sex: Male
  Weight: 72.56 kg

DRUGS (5)
  1. VIAGRA [Suspect]
     Indication: ERECTILE DYSFUNCTION
     Dosage: 100 MG, UNK
     Route: 048
     Dates: start: 20100406, end: 20100406
  2. VALSARTAN [Concomitant]
     Indication: HYPERTENSION
     Dosage: UNK
  3. CRESTOR [Concomitant]
     Dosage: UNK
  4. ZOLPIDEM [Concomitant]
     Dosage: UNK
  5. DARVOCET [Concomitant]
     Dosage: UNK

REACTIONS (2)
  - CHROMATOPSIA [None]
  - PHOTOPHOBIA [None]
